FAERS Safety Report 14625488 (Version 1)
Quarter: 2018Q1

REPORT INFORMATION
  Report Type: Spontaneous
  Country: US (occurrence: US)
  Receive Date: 20180312
  Receipt Date: 20180312
  Transmission Date: 20180509
  Serious: No
  Sender: FDA-Public Use
  Company Number: US-ALLERGAN-1723489US

PATIENT
  Age: 68 Year
  Sex: Female

DRUGS (1)
  1. OXYTROL [Suspect]
     Active Substance: OXYBUTYNIN
     Indication: URINARY TRACT DISORDER
     Dosage: UNK
     Route: 062

REACTIONS (3)
  - Dizziness [Unknown]
  - Drug dose omission [Unknown]
  - Intentional product misuse [Unknown]
